FAERS Safety Report 6458665-9 (Version None)
Quarter: 2009Q4

REPORT INFORMATION
  Report Type: 
  Country: None (occurrence: None)
  Receive Date: 20091127
  Receipt Date: 20091116
  Transmission Date: 20100525
  Serious: Yes (Other)
  Sender: FDA-Public Use
  Company Number: US-JNJFOC-20091105336

PATIENT
  Sex: Female
  Weight: 47.63 kg

DRUGS (7)
  1. DURAGESIC-100 [Suspect]
     Indication: FIBROMYALGIA
     Dosage: NDC#: 50458-036-05
     Route: 062
     Dates: start: 20070101
  2. PERCOCET [Concomitant]
     Indication: BREAKTHROUGH PAIN
  3. CYMBALTA [Concomitant]
     Indication: DRUG USE FOR UNKNOWN INDICATION
  4. ELAVIL [Concomitant]
     Indication: DRUG USE FOR UNKNOWN INDICATION
  5. DIAZEPAM [Concomitant]
     Indication: DRUG USE FOR UNKNOWN INDICATION
  6. OMEPRAZOLE [Concomitant]
     Indication: DYSPEPSIA
  7. STOOL SOFTENER [Concomitant]
     Indication: ABNORMAL FAECES

REACTIONS (6)
  - APPLICATION SITE IRRITATION [None]
  - CHEST PAIN [None]
  - DRUG ADMINISTERED AT INAPPROPRIATE SITE [None]
  - EAR INFECTION [None]
  - EYE INFECTION [None]
  - WRONG TECHNIQUE IN DRUG USAGE PROCESS [None]
